APPROVED DRUG PRODUCT: CLOTRIMAZOLE
Active Ingredient: CLOTRIMAZOLE
Strength: 1%
Dosage Form/Route: CREAM;VAGINAL
Application: A072641 | Product #001
Applicant: SUN PHARMA CANADA INC
Approved: Dec 4, 1995 | RLD: No | RS: No | Type: OTC